FAERS Safety Report 23032734 (Version 1)
Quarter: 2023Q4

REPORT INFORMATION
  Report Type: Spontaneous
  Country: US (occurrence: US)
  Receive Date: 20231005
  Receipt Date: 20231005
  Transmission Date: 20240110
  Serious: No
  Sender: FDA-Public Use
  Company Number: US-009507513-2309USA002719

PATIENT
  Sex: Male

DRUGS (2)
  1. TEMODAR [Suspect]
     Active Substance: TEMOZOLOMIDE
     Indication: Astrocytoma malignant
     Dosage: UNK
     Route: 048
  2. LOMUSTINE [Concomitant]
     Active Substance: LOMUSTINE
     Indication: Astrocytoma malignant
     Dosage: UNK

REACTIONS (1)
  - Acquired gene mutation [Unknown]
